FAERS Safety Report 5802562-6 (Version None)
Quarter: 2008Q3

REPORT INFORMATION
  Report Type: 
  Country: None (occurrence: None)
  Receive Date: 20080708
  Receipt Date: 20080627
  Transmission Date: 20090109
  Serious: Yes (Other)
  Sender: FDA-Public Use
  Company Number: PHHY2008JP12449

PATIENT
  Sex: Female

DRUGS (2)
  1. MIKELAN (NVO) [Suspect]
     Indication: NORMAL TENSION GLAUCOMA
     Dosage: 2 %, 1GTT OU
     Route: 047
     Dates: start: 20080318, end: 20080411
  2. PIRENOXINE [Concomitant]
     Indication: NORMAL TENSION GLAUCOMA
     Dosage: 4 GTT OU
     Dates: start: 20080210

REACTIONS (4)
  - BRADYCARDIA [None]
  - DIZZINESS [None]
  - PALPITATIONS [None]
  - VENTRICULAR EXTRASYSTOLES [None]
